FAERS Safety Report 10201406 (Version 1)
Quarter: 2014Q2

REPORT INFORMATION
  Report Type: Report from Study
  Country: CO (occurrence: CO)
  Receive Date: 20140528
  Receipt Date: 20140528
  Transmission Date: 20141212
  Serious: Yes (Death)
  Sender: FDA-Public Use
  Company Number: CO-SA-2014SA063520

PATIENT
  Age: 19 Year
  Sex: Female

DRUGS (2)
  1. LANTUS [Suspect]
     Indication: DIABETES MELLITUS
     Dosage: DOSE:14 UNIT(S)
     Route: 058
     Dates: start: 2011, end: 20140128
  2. INSULIN LISPRO [Suspect]
     Indication: DIABETES MELLITUS
     Dosage: DOSE:7 UNIT(S)
     Route: 058
     Dates: start: 2011, end: 20140128

REACTIONS (1)
  - Respiratory arrest [Fatal]
